FAERS Safety Report 7788734-2 (Version None)
Quarter: 2011Q3

REPORT INFORMATION
  Report Type: 
  Country: None (occurrence: None)
  Receive Date: 20110928
  Receipt Date: 20110920
  Transmission Date: 20111222
  Serious: Yes (Other)
  Sender: FDA-Public Use
  Company Number: AUR-APL-2011-05136

PATIENT
  Age: 85 Year
  Sex: Female
  Weight: 49.8957 kg

DRUGS (1)
  1. ALENDRONATE SODIUM [Suspect]
     Indication: OSTEOPOROSIS
     Dosage: 10 MG (70 MG, 1 IN 1 WK), ORAL
     Route: 048
     Dates: start: 20081001

REACTIONS (1)
  - HAIR COLOUR CHANGES [None]
